FAERS Safety Report 18726687 (Version 1)
Quarter: 2021Q1

REPORT INFORMATION
  Report Type: Other
  Country: US (occurrence: US)
  Receive Date: 20210112
  Receipt Date: 20210112
  Transmission Date: 20210419
  Serious: Yes (Death)
  Sender: FDA-Public Use
  Company Number: US-ROCHE-2746987

PATIENT
  Sex: Male

DRUGS (1)
  1. ESBRIET [Suspect]
     Active Substance: PIRFENIDONE
     Indication: IDIOPATHIC PULMONARY FIBROSIS
     Dosage: DAY 8?14: 2 TAB BY MOUTH THRICE DAILY WITH MEALS?DAY 15 ONWARDS: 3 TAB BY MOUTH THRICE DAILY WITH ME
     Route: 048

REACTIONS (1)
  - Death [Fatal]
